FAERS Safety Report 5534026-1 (Version None)
Quarter: 2007Q4

REPORT INFORMATION
  Report Type: 
  Country: None (occurrence: None)
  Receive Date: 20071205
  Receipt Date: 20071128
  Transmission Date: 20080405
  Serious: Yes (Other)
  Sender: FDA-Public Use
  Company Number: PHBS2007JP20147

PATIENT
  Age: 7 Year
  Weight: 25 kg

DRUGS (3)
  1. NEORAL [Suspect]
     Indication: NEPHROTIC SYNDROME
     Dosage: 170 MG/D
     Route: 048
  2. UNSPECIFIED DRUGS [Concomitant]
     Indication: NEPHROTIC SYNDROME
     Route: 048
  3. STEROIDS NOS [Concomitant]

REACTIONS (1)
  - HENOCH-SCHONLEIN PURPURA [None]
